FAERS Safety Report 10090946 (Version 1)
Quarter: 2014Q2

REPORT INFORMATION
  Report Type: Spontaneous
  Country: US (occurrence: US)
  Receive Date: 20140421
  Receipt Date: 20140421
  Transmission Date: 20141212
  Serious: No
  Sender: FDA-Public Use
  Company Number: US-GILEAD-2012-0064080

PATIENT
  Age: 82 Year
  Sex: Female

DRUGS (4)
  1. LETAIRIS [Suspect]
     Indication: PULMONARY HYPERTENSION
     Dosage: 10 MG, QD
     Route: 048
     Dates: start: 20120611
  2. ADCIRCA [Concomitant]
  3. DILTIAZEM [Concomitant]
  4. LASIX [Concomitant]

REACTIONS (2)
  - Middle ear effusion [Not Recovered/Not Resolved]
  - Nasal congestion [Not Recovered/Not Resolved]
